FAERS Safety Report 18584971 (Version 1)
Quarter: 2020Q4

REPORT INFORMATION
  Report Type: Spontaneous
  Country: CN (occurrence: CN)
  Receive Date: 20201207
  Receipt Date: 20201207
  Transmission Date: 20210114
  Serious: Yes (Death, Life-Threatening, Hospitalization, Other)
  Sender: FDA-Public Use
  Company Number: CN-LUPIN PHARMACEUTICALS INC.-2020-09816

PATIENT
  Age: 51 Year
  Sex: Female

DRUGS (10)
  1. HYDROCORTISONE. [Suspect]
     Active Substance: HYDROCORTISONE
     Dosage: 50 MILLIGRAM, TID (ON DAY 1)
     Route: 065
  2. PROPYLTHIOURACIL. [Suspect]
     Active Substance: PROPYLTHIOURACIL
     Dosage: 100 MILLIGRAM, QID ((FROM DAY 1-2))
     Route: 065
  3. HYDROCORTISONE. [Suspect]
     Active Substance: HYDROCORTISONE
     Indication: THYROTOXIC CRISIS
     Dosage: 100 MILLIGRAM, BID (ON ARRIVAL)
     Route: 065
  4. HYDROCORTISONE. [Suspect]
     Active Substance: HYDROCORTISONE
     Dosage: 50 MILLIGRAM, BID (ON DAY 2)
     Route: 065
  5. PROPYLTHIOURACIL. [Suspect]
     Active Substance: PROPYLTHIOURACIL
     Indication: THYROTOXIC CRISIS
     Dosage: 200 MILLIGRAM (ON ARRIVAL)
     Route: 065
  6. ERTAPENEM. [Concomitant]
     Active Substance: ERTAPENEM SODIUM
     Indication: THYROTOXIC CRISIS
     Dosage: UNK
     Route: 065
  7. HYDROCORTISONE. [Suspect]
     Active Substance: HYDROCORTISONE
     Dosage: 50 MILLIGRAM, QD (ON DAY 3)
     Route: 065
  8. PROPYLTHIOURACIL. [Suspect]
     Active Substance: PROPYLTHIOURACIL
     Dosage: 100 MILLIGRAM, TID (FROM DAY 3-5)
     Route: 065
  9. ESMOLOL [Concomitant]
     Active Substance: ESMOLOL HYDROCHLORIDE
     Indication: THYROTOXIC CRISIS
     Dosage: UNK (0.05-0.1MICROG/KG/MIN; FROM DAY1-4)
     Route: 065
  10. PROPRANOLOL [Concomitant]
     Active Substance: PROPRANOLOL HYDROCHLORIDE
     Indication: THYROTOXIC CRISIS
     Dosage: 10 MILLIGRAM, TID (FROM DAY 4-5)
     Route: 065

REACTIONS (7)
  - Thyrotoxic crisis [Fatal]
  - Circulatory collapse [Fatal]
  - Cardiac arrest [Fatal]
  - Rebound effect [Fatal]
  - Ventricular fibrillation [Unknown]
  - Loss of consciousness [Unknown]
  - Infection [Fatal]
